FAERS Safety Report 9147056 (Version 1)
Quarter: 2013Q1

REPORT INFORMATION
  Report Type: Report from Study
  Country: JP (occurrence: JP)
  Receive Date: 20130307
  Receipt Date: 20130307
  Transmission Date: 20140127
  Serious: Yes (Death)
  Sender: FDA-Public Use
  Company Number: JP-ROCHE-1198750

PATIENT
  Age: 85 Year
  Sex: Female

DRUGS (6)
  1. TICLOPIDINE [Concomitant]
     Indication: CEREBRAL INFARCTION
     Route: 048
     Dates: end: 20110330
  2. BAYASPIRIN [Concomitant]
     Indication: CEREBRAL INFARCTION
     Route: 048
     Dates: end: 20110330
  3. HEPARIN SODIUM [Concomitant]
     Route: 041
     Dates: start: 20110330, end: 20110330
  4. MANITOL [Concomitant]
     Route: 041
     Dates: start: 20110330, end: 20110330
  5. ALTEPLASE [Suspect]
     Indication: EMBOLIC STROKE
     Route: 042
     Dates: start: 20110330, end: 20110330
  6. RADICUT [Concomitant]
     Route: 041
     Dates: start: 20110330, end: 20110330

REACTIONS (1)
  - Subarachnoid haemorrhage [Fatal]
